FAERS Safety Report 8180969-2 (Version None)
Quarter: 2012Q1

REPORT INFORMATION
  Report Type: 
  Country: None (occurrence: None)
  Receive Date: 20120302
  Receipt Date: 20120222
  Transmission Date: 20120608
  Serious: No
  Sender: FDA-Public Use
  Company Number: US-BAYER-2012-018496

PATIENT
  Sex: Female

DRUGS (4)
  1. NORVASC [Concomitant]
  2. ALEVE (CAPLET) [Suspect]
     Dosage: UNK
     Dates: start: 20110101, end: 20120101
  3. ALEVE (CAPLET) [Suspect]
     Indication: ARTHRITIS
     Dosage: 2 DF, QD
     Route: 048
     Dates: start: 20120201
  4. CRESTOR [Concomitant]

REACTIONS (1)
  - NO ADVERSE EVENT [None]
